FAERS Safety Report 23450193 (Version 1)
Quarter: 2024Q1

REPORT INFORMATION
  Report Type: Spontaneous
  Country: US (occurrence: None)
  Receive Date: 20240129
  Receipt Date: 20240129
  Transmission Date: 20240410
  Serious: No
  Sender: FDA-Public Use
  Company Number: 2024A019569

PATIENT
  Sex: Female

DRUGS (1)
  1. SYMBICORT [Suspect]
     Active Substance: BUDESONIDE\FORMOTEROL FUMARATE DIHYDRATE
     Dosage: UNKNOWN UNKNOWN
     Route: 055

REACTIONS (11)
  - Lung disorder [Unknown]
  - Hypoacusis [Unknown]
  - Extrasystoles [Unknown]
  - Memory impairment [Unknown]
  - Blood cholesterol increased [Unknown]
  - Feeling abnormal [Unknown]
  - Skin warm [Unknown]
  - Headache [Unknown]
  - Thyroid mass [Unknown]
  - Thyroid disorder [Unknown]
  - Product dose omission issue [Unknown]
